FAERS Safety Report 11012470 (Version 1)
Quarter: 2015Q2

REPORT INFORMATION
  Report Type: Spontaneous
  Country: US (occurrence: None)
  Receive Date: 20150410
  Receipt Date: 20150410
  Transmission Date: 20150821
  Serious: Yes (Life-Threatening)
  Sender: FDA-Public Use
  Company Number: None

PATIENT
  Age: 76 Year
  Sex: Male
  Weight: 84 kg

DRUGS (17)
  1. HYDROMORPHONE [Suspect]
     Active Substance: HYDROMORPHONE
     Route: 042
  2. CIPROFLOXACIN (CIPRO) [Concomitant]
  3. WARFARIN (COUMADIN) [Concomitant]
  4. GABAPENTIN (NEURONTIN) [Concomitant]
  5. BACLOFEN. [Concomitant]
     Active Substance: BACLOFEN
  6. SOTALOL (BETAPACE) [Concomitant]
  7. SILVER SULFADIAZINE) (SSD AF) [Concomitant]
  8. WARFARIN (COUMADIN) [Concomitant]
  9. HYDROCODONE BITARTRATE AND ACETAMINOPHEN [Concomitant]
     Active Substance: ACETAMINOPHEN\HYDROCODONE BITARTRATE
  10. FUROSEMIDE (LASIX) [Concomitant]
  11. CLOBETASOL (TEMOVATE) [Concomitant]
  12. GENTAMICIN (GARAMYCIN) [Concomitant]
  13. FLOMAX [Concomitant]
     Active Substance: TAMSULOSIN HYDROCHLORIDE
  14. POLYETHYLENE GLYCOL (GLYCOLAX, MIRALAX) [Concomitant]
  15. POTASSIUM CHLORIDE (K-DUR) [Concomitant]
  16. DOCUSATE SODIUM (COLACE) [Concomitant]
  17. BACLOFEN. [Concomitant]
     Active Substance: BACLOFEN

REACTIONS (4)
  - Breath sounds abnormal [None]
  - Respiratory disorder [None]
  - Oxygen saturation decreased [None]
  - Somnolence [None]

NARRATIVE: CASE EVENT DATE: 20150119
